FAERS Safety Report 9102080 (Version 1)
Quarter: 2013Q1

REPORT INFORMATION
  Report Type: Spontaneous
  Country: US (occurrence: US)
  Receive Date: 20130218
  Receipt Date: 20130218
  Transmission Date: 20140127
  Serious: Yes (Death)
  Sender: FDA-Public Use
  Company Number: US-AMGEN-USASP2013010820

PATIENT
  Age: 69 Year
  Sex: Male

DRUGS (4)
  1. ENBREL [Suspect]
     Indication: PRODUCT USED FOR UNKNOWN INDICATION
     Dosage: 25 MG, 2 TIMES/WK
     Route: 058
  2. VERAPAMIL [Concomitant]
     Dosage: 100 MG, UNK
  3. ASPIRIN LOW [Concomitant]
     Dosage: 81 MG, UNK
  4. AGGRENOX [Concomitant]
     Dosage: 25-200 MG

REACTIONS (1)
  - Death [Fatal]
